FAERS Safety Report 6510169-0 (Version None)
Quarter: 2009Q4

REPORT INFORMATION
  Report Type: 
  Country: None (occurrence: None)
  Receive Date: 20091221
  Receipt Date: 20091221
  Transmission Date: 20100525
  Serious: Yes (Hospitalization)
  Sender: FDA-Public Use
  Company Number: None

PATIENT
  Sex: Male
  Weight: 19.4 kg

DRUGS (4)
  1. MERCAPTOPURINE [Suspect]
     Dosage: 400 MG
  2. METHOTREXATE [Suspect]
     Dosage: 12 MG
  3. PREDNISONE TAB [Suspect]
     Dosage: 150 MG
  4. VINCRISTINE SULFATE [Suspect]
     Dosage: 1.1 MG

REACTIONS (7)
  - ABDOMINAL DISTENSION [None]
  - ABDOMINAL PAIN [None]
  - ALANINE AMINOTRANSFERASE INCREASED [None]
  - ASPARTATE AMINOTRANSFERASE INCREASED [None]
  - PANCREATIC ENLARGEMENT [None]
  - PANCREATITIS [None]
  - PYREXIA [None]
